FAERS Safety Report 6270652-2 (Version None)
Quarter: 2009Q3

REPORT INFORMATION
  Report Type: 
  Country: None (occurrence: None)
  Receive Date: 20090716
  Receipt Date: 20090707
  Transmission Date: 20100115
  Serious: Yes (Hospitalization)
  Sender: FDA-Public Use
  Company Number: FR-ASTRAZENECA-2009SE04403

PATIENT
  Age: 58 Year
  Sex: Female
  Weight: 60 kg

DRUGS (12)
  1. NEXIUM [Suspect]
     Route: 048
     Dates: start: 20010101
  2. ACTONEL [Suspect]
     Route: 048
     Dates: start: 20070101
  3. METHOTREXATE [Suspect]
     Dosage: 10MG/WEEK
     Dates: start: 19870101
  4. LYRICA [Suspect]
     Indication: NEURALGIA
     Route: 048
     Dates: start: 20070101
  5. REMICADE [Suspect]
     Dosage: 1DF/8WEEKS
     Route: 042
     Dates: start: 20010101, end: 20081223
  6. FORTEO [Suspect]
     Indication: OSTEOPOROSIS
     Route: 058
     Dates: start: 20080201, end: 20081201
  7. DIFFU K [Concomitant]
     Dates: start: 20010101
  8. PARACETAMOL [Concomitant]
  9. PREDNISONE TAB [Concomitant]
  10. BI PROFENID [Concomitant]
  11. OROCAL D3 [Concomitant]
     Dates: start: 20081201
  12. RIVOTRIL [Concomitant]
     Dates: start: 20081201

REACTIONS (6)
  - BACTERIAL INFECTION [None]
  - FACIAL NEURALGIA [None]
  - OSTEOPOROSIS [None]
  - PARAESTHESIA [None]
  - PERIPHERAL SENSORIMOTOR NEUROPATHY [None]
  - ROAD TRAFFIC ACCIDENT [None]
